FAERS Safety Report 8175979-5 (Version None)
Quarter: 2012Q1

REPORT INFORMATION
  Report Type: 
  Country: None (occurrence: None)
  Receive Date: 20120301
  Receipt Date: 20120224
  Transmission Date: 20120608
  Serious: No
  Sender: FDA-Public Use
  Company Number: US-PFIZER INC-2012049964

PATIENT
  Sex: Female

DRUGS (2)
  1. LATANOPROST [Suspect]
     Indication: INTRAOCULAR PRESSURE DECREASED
     Dosage: ONE DROP IN EACH EYE
     Route: 047
  2. XALATAN [Suspect]
     Indication: INTRAOCULAR PRESSURE TEST ABNORMAL
     Dosage: ONE DROP IN EACH EYE
     Route: 047

REACTIONS (1)
  - EYE IRRITATION [None]
